FAERS Safety Report 8374538-9 (Version None)
Quarter: 2012Q2

REPORT INFORMATION
  Report Type: 
  Country: None (occurrence: None)
  Receive Date: 20120521
  Receipt Date: 20120518
  Transmission Date: 20120825
  Serious: Yes (Other)
  Sender: FDA-Public Use
  Company Number: US-PFIZER INC-2012102391

PATIENT
  Sex: Female

DRUGS (2)
  1. RITALIN [Concomitant]
     Dosage: 5 MG, 2X/DAY
  2. CELEBREX [Suspect]
     Dosage: 200 MG, 1X/DAY

REACTIONS (2)
  - CRANIOCEREBRAL INJURY [None]
  - CONVULSION [None]
